FAERS Safety Report 4960554-3 (Version None)
Quarter: 2006Q1

REPORT INFORMATION
  Report Type: 
  Country: None (occurrence: None)
  Receive Date: 20060331
  Receipt Date: 20060331
  Transmission Date: 20060701
  Serious: Yes (Other)
  Sender: FDA-Public Use
  Company Number: None

PATIENT
  Age: 65 Year
  Sex: Male
  Weight: 84.1 kg

DRUGS (3)
  1. VANCOMYCIN [Suspect]
     Indication: CELLULITIS
     Dosage: 1250 MG Q 12 H IVPB
     Route: 040
     Dates: start: 20060313, end: 20060315
  2. VANCOMYCIN [Suspect]
     Indication: STAPHYLOCOCCAL INFECTION
     Dosage: 1250 MG Q 12 H IVPB
     Route: 040
     Dates: start: 20060313, end: 20060315
  3. VICODIN [Concomitant]

REACTIONS (2)
  - HEART RATE INCREASED [None]
  - RED MAN SYNDROME [None]
